FAERS Safety Report 7230835-1 (Version None)
Quarter: 2011Q1

REPORT INFORMATION
  Report Type: 
  Country: None (occurrence: None)
  Receive Date: 20110107
  Receipt Date: 20101223
  Transmission Date: 20110831
  Serious: Yes (Other)
  Sender: FDA-Public Use
  Company Number: 024731

PATIENT

DRUGS (7)
  1. CARBIDOPA [Concomitant]
  2. BENSERAZIDE [Concomitant]
  3. PRAMIPEXOLE [Concomitant]
  4. LEVETIRACETAM [Suspect]
     Indication: DYSKINESIA
     Dosage: (125 MG QD), (250 MG), (375 MG)
  5. LEVETIRACETAM [Suspect]
     Indication: DYSKINESIA
     Dosage: (125 MG QD), (250 MG), (375 MG)
  6. LEVODOPA [Concomitant]
  7. ENTACAPONE [Concomitant]

REACTIONS (5)
  - OFF LABEL USE [None]
  - PARKINSON'S DISEASE [None]
  - IRRITABILITY [None]
  - CONDITION AGGRAVATED [None]
  - ANXIETY [None]
